FAERS Safety Report 7959830-1 (Version None)
Quarter: 2011Q4

REPORT INFORMATION
  Report Type: 
  Country: None (occurrence: None)
  Receive Date: 20111206
  Receipt Date: 20111201
  Transmission Date: 20120403
  Serious: Yes (Other)
  Sender: FDA-Public Use
  Company Number: US-PFIZER INC-2011264224

PATIENT
  Sex: Female

DRUGS (2)
  1. SUTENT [Suspect]
     Indication: RENAL CANCER
     Dosage: 50 MG, UNK
     Dates: start: 20111019
  2. SUTENT [Suspect]
     Dosage: 37.5 MG, UNK
     Dates: start: 20111101

REACTIONS (5)
  - CANDIDIASIS [None]
  - LUNG INFECTION [None]
  - URINARY TRACT INFECTION [None]
  - DYSPEPSIA [None]
  - FUNGAL INFECTION [None]
